FAERS Safety Report 18967856 (Version 1)
Quarter: 2021Q1

REPORT INFORMATION
  Report Type: Spontaneous
  Country: US (occurrence: US)
  Receive Date: 20210303
  Receipt Date: 20210303
  Transmission Date: 20210420
  Serious: Yes (Death)
  Sender: FDA-Public Use
  Company Number: None

PATIENT
  Age: 51 Year
  Sex: Male

DRUGS (2)
  1. MYFORTIC [Suspect]
     Active Substance: MYCOPHENOLATE SODIUM
     Indication: RENAL TRANSPLANT
     Route: 048
     Dates: start: 20190509
  2. TACROLIMUS 1 MG [Suspect]
     Active Substance: TACROLIMUS
     Route: 048

REACTIONS (2)
  - COVID-19 [None]
  - Septic shock [None]

NARRATIVE: CASE EVENT DATE: 20210128
